FAERS Safety Report 10073781 (Version 2)
Quarter: 2014Q2

REPORT INFORMATION
  Report Type: Report from Study
  Country: CA (occurrence: CA)
  Receive Date: 20140411
  Receipt Date: 20140430
  Transmission Date: 20141212
  Serious: Yes (Other)
  Sender: FDA-Public Use
  Company Number: CA-ABBVIE-14P-028-1221578-00

PATIENT
  Age: 70 Year
  Sex: Female

DRUGS (2)
  1. HUMIRA [Suspect]
     Indication: RHEUMATOID ARTHRITIS
     Route: 058
     Dates: start: 20130908
  2. HUMIRA [Suspect]
     Route: 058
     Dates: start: 2013

REACTIONS (4)
  - Tendon rupture [Recovering/Resolving]
  - Injection site bruising [Not Recovered/Not Resolved]
  - Injection site mass [Not Recovered/Not Resolved]
  - Injection site induration [Not Recovered/Not Resolved]
